FAERS Safety Report 23958911 (Version 1)
Quarter: 2024Q2

REPORT INFORMATION
  Report Type: Report from Study
  Country: US (occurrence: US)
  Receive Date: 20240611
  Receipt Date: 20240611
  Transmission Date: 20240716
  Serious: Yes (Other)
  Sender: FDA-Public Use
  Company Number: US-ABBVIE-5790547

PATIENT
  Sex: Male

DRUGS (1)
  1. HUMIRA [Suspect]
     Active Substance: ADALIMUMAB
     Indication: Product used for unknown indication
     Dosage: FORM STRENGTH: 40MILLIGRAM,?CITRATE FREE
     Route: 058

REACTIONS (6)
  - Hernia [Recovered/Resolved]
  - Intervertebral disc disorder [Unknown]
  - Osteoporosis [Unknown]
  - Musculoskeletal disorder [Unknown]
  - Nerve compression [Unknown]
  - Osteopenia [Unknown]
